FAERS Safety Report 11375927 (Version 2)
Quarter: 2015Q4

REPORT INFORMATION
  Report Type: Spontaneous
  Country: JP (occurrence: JP)
  Receive Date: 20150813
  Receipt Date: 20151019
  Transmission Date: 20160304
  Serious: Yes (Hospitalization, Other)
  Sender: FDA-Public Use
  Company Number: JP-PFIZER INC-2015258632

PATIENT
  Age: 59 Year
  Sex: Male
  Weight: 60 kg

DRUGS (1)
  1. SUTENT [Suspect]
     Active Substance: SUNITINIB MALATE
     Dosage: 50 MG, 1X/DAY (4 WEEKS ON TREATMENT FOLLOWED BY 2 WEEKS OFF)
     Route: 048
     Dates: start: 20150629

REACTIONS (1)
  - Bone marrow failure [Recovering/Resolving]
